FAERS Safety Report 13799100 (Version 1)
Quarter: 2017Q3

REPORT INFORMATION
  Report Type: Spontaneous
  Country: US (occurrence: US)
  Receive Date: 20170727
  Receipt Date: 20170727
  Transmission Date: 20171127
  Serious: No
  Sender: FDA-Public Use
  Company Number: US-JNJFOC-20170610347

PATIENT
  Age: 85 Year
  Sex: Male
  Weight: 68.04 kg

DRUGS (2)
  1. VISINE A [Suspect]
     Active Substance: NAPHAZOLINE HYDROCHLORIDE\PHENIRAMINE MALEATE
     Route: 047
  2. VISINE A [Suspect]
     Active Substance: NAPHAZOLINE HYDROCHLORIDE\PHENIRAMINE MALEATE
     Indication: EYE PRURITUS
     Dosage: 2 DROPS IN EACH EYE (USING DROPPER), 3 TIMES A DAY
     Route: 047
     Dates: start: 20170605, end: 20170609

REACTIONS (1)
  - Drug ineffective [Unknown]
